FAERS Safety Report 24724613 (Version 1)
Quarter: 2024Q4

REPORT INFORMATION
  Report Type: Spontaneous
  Country: US (occurrence: US)
  Receive Date: 20241212
  Receipt Date: 20241212
  Transmission Date: 20250115
  Serious: No
  Sender: NOVARTIS
  Company Number: US-002147023-NVSC2024US236240

PATIENT

DRUGS (1)
  1. LEQVIO [Suspect]
     Active Substance: INCLISIRAN SODIUM
     Indication: Hyperlipidaemia
     Dosage: 284 MG/KG, OTHER (284NG/1,5ML), (INITIALLY,AGAIN IN 3 MONTHS, THEN EVERY 6 MONTHS)
     Route: 058

REACTIONS (1)
  - Therapy non-responder [Unknown]
